FAERS Safety Report 5253426-0 (Version None)
Quarter: 2007Q1

REPORT INFORMATION
  Report Type: 
  Country: None (occurrence: None)
  Receive Date: 20061201
  Receipt Date: 20060828
  Transmission Date: 20070707
  Serious: No
  Sender: FDA-Public Use
  Company Number: 2006PV020189

PATIENT
  Age: 73 Year
  Sex: Female
  Weight: 76.2043 kg

DRUGS (5)
  1. BYETTA [Suspect]
     Indication: DIABETES MELLITUS NON-INSULIN-DEPENDENT
     Dosage: 5 MCG; 10 MCG; BID; SC
     Route: 058
     Dates: start: 20060601, end: 20060701
  2. BYETTA [Suspect]
     Indication: DIABETES MELLITUS NON-INSULIN-DEPENDENT
     Dosage: 5 MCG; 10 MCG; BID; SC
     Route: 058
     Dates: start: 20060701, end: 20060822
  3. BYETTA [Suspect]
     Indication: DIABETES MELLITUS NON-INSULIN-DEPENDENT
     Dosage: 5 MCG; 10 MCG; BID; SC
     Route: 058
     Dates: start: 20060823
  4. AVANDIA [Concomitant]
  5. GLIMEPIRIDE [Concomitant]

REACTIONS (7)
  - BLOOD GLUCOSE INCREASED [None]
  - CONFUSIONAL STATE [None]
  - DECREASED APPETITE [None]
  - HYPERHIDROSIS [None]
  - HYPOGLYCAEMIA [None]
  - NERVOUSNESS [None]
  - WEIGHT DECREASED [None]
